FAERS Safety Report 16489088 (Version 3)
Quarter: 2019Q3

REPORT INFORMATION
  Report Type: Report from Study
  Country: GB (occurrence: GB)
  Receive Date: 20190628
  Receipt Date: 20190801
  Transmission Date: 20191004
  Serious: Yes (Other)
  Sender: FDA-Public Use
  Company Number: GB-AUROBINDO-AUR-APL-2019-036182

PATIENT

DRUGS (3)
  1. CITALOPRAM [Suspect]
     Active Substance: CITALOPRAM HYDROBROMIDE
     Indication: ANTIDEPRESSANT THERAPY
     Dosage: 40 MILLIGRAM, DAILY
     Route: 065
  2. LITHIUM. [Suspect]
     Active Substance: LITHIUM
     Indication: PSYCHOTIC DISORDER
     Dosage: 675 MILLIGRAM, DAILY
     Route: 016
  3. QUETIAPINE. [Suspect]
     Active Substance: QUETIAPINE
     Indication: PSYCHOTIC DISORDER
     Dosage: 100 MILLIGRAM, DAILY
     Route: 065

REACTIONS (8)
  - Cerebellar ataxia [Unknown]
  - Myoclonus [Unknown]
  - Postural tremor [Unknown]
  - Action tremor [Unknown]
  - Cerebellar atrophy [Unknown]
  - Tremor [Unknown]
  - Nervous system disorder [Unknown]
  - Ataxia [Unknown]
